FAERS Safety Report 9525789 (Version 1)
Quarter: 2013Q1

REPORT INFORMATION
  Report Type: Spontaneous
  Country: US (occurrence: None)
  Receive Date: 20130314
  Receipt Date: 20130314
  Transmission Date: 20140127
  Serious: No
  Sender: FDA-Public Use
  Company Number: 1301USA005512

PATIENT
  Age: 35 Year
  Sex: Female
  Weight: 98.9 kg

DRUGS (3)
  1. VICTRELIS [Suspect]
     Indication: HEPATITIS C
     Route: 048
     Dates: start: 2012, end: 201301
  2. RIBAVIRIN [Suspect]
     Route: 048
     Dates: start: 2012
  3. INTERFERON ALFA-2B [Suspect]
     Dates: start: 2012

REACTIONS (2)
  - Rash [None]
  - Rash maculo-papular [None]
